FAERS Safety Report 17308846 (Version 2)
Quarter: 2020Q1

REPORT INFORMATION
  Report Type: Spontaneous
  Country: ES (occurrence: ES)
  Receive Date: 20200123
  Receipt Date: 20200128
  Transmission Date: 20200409
  Serious: Yes (Hospitalization, Other)
  Sender: FDA-Public Use
  Company Number: ES-009507513-2001ESP007098

PATIENT
  Age: 54 Year
  Sex: Male

DRUGS (1)
  1. KEYTRUDA [Suspect]
     Active Substance: PEMBROLIZUMAB
     Indication: LUNG NEOPLASM MALIGNANT
     Dosage: UNK, CYCLICAL

REACTIONS (3)
  - Dermatitis exfoliative generalised [Recovered/Resolved]
  - Disseminated intravascular coagulation [Recovered/Resolved]
  - Septic shock [Recovered/Resolved]
